FAERS Safety Report 12439376 (Version 2)
Quarter: 2016Q2

REPORT INFORMATION
  Report Type: Report from Study
  Country: US (occurrence: US)
  Receive Date: 20160606
  Receipt Date: 20160614
  Transmission Date: 20160815
  Serious: Yes (Other)
  Sender: FDA-Public Use
  Company Number: US-JNJFOC-20160527548

PATIENT
  Sex: Female

DRUGS (2)
  1. STELARA [Suspect]
     Active Substance: USTEKINUMAB
     Indication: PSORIATIC ARTHROPATHY
     Route: 058
  2. STELARA [Suspect]
     Active Substance: USTEKINUMAB
     Indication: PSORIASIS
     Route: 058

REACTIONS (6)
  - Upper respiratory tract infection [Unknown]
  - Drug effect decreased [Unknown]
  - Back pain [Unknown]
  - Lymphadenopathy [Unknown]
  - Osteoarthritis [Recovering/Resolving]
  - Tooth abscess [Unknown]

NARRATIVE: CASE EVENT DATE: 2015
